FAERS Safety Report 11119357 (Version 1)
Quarter: 2015Q2

REPORT INFORMATION
  Report Type: Spontaneous
  Country: US (occurrence: US)
  Receive Date: 20150518
  Receipt Date: 20150518
  Transmission Date: 20150821
  Serious: Yes (Hospitalization)
  Sender: FDA-Public Use
  Company Number: US-PFIZER INC-2015164907

PATIENT
  Age: 95 Year
  Sex: Male
  Weight: 66 kg

DRUGS (1)
  1. INLYTA [Suspect]
     Active Substance: AXITINIB
     Indication: RENAL CANCER METASTATIC
     Dosage: TWO, DAILY
     Route: 048
     Dates: start: 20150321

REACTIONS (3)
  - Asthenia [Unknown]
  - Fall [Recovered/Resolved with Sequelae]
  - Hip fracture [Recovered/Resolved with Sequelae]

NARRATIVE: CASE EVENT DATE: 20150412
